FAERS Safety Report 18196495 (Version 1)
Quarter: 2020Q3

REPORT INFORMATION
  Report Type: Spontaneous
  Country: US (occurrence: US)
  Receive Date: 20200825
  Receipt Date: 20200825
  Transmission Date: 20201103
  Serious: Yes (Hospitalization, Other)
  Sender: FDA-Public Use
  Company Number: None

PATIENT
  Age: 15 Year
  Sex: Female
  Weight: 58.5 kg

DRUGS (1)
  1. QBREXZA [Suspect]
     Active Substance: GLYCOPYRRONIUM TOSYLATE
     Indication: HYPERHIDROSIS
     Dosage: ?          QUANTITY:30 SINGLE USE CLOTHS;OTHER ROUTE:WIPED ON SKIN LIKE UNDERARM OR BACK?
     Dates: start: 20200711, end: 20200811

REACTIONS (5)
  - Dry mouth [None]
  - Nausea [None]
  - Headache [None]
  - Urinary retention [None]
  - Peripheral swelling [None]

NARRATIVE: CASE EVENT DATE: 20200811
